FAERS Safety Report 6551654-5 (Version None)
Quarter: 2010Q1

REPORT INFORMATION
  Report Type: 
  Country: None (occurrence: None)
  Receive Date: 20100126
  Receipt Date: 20100115
  Transmission Date: 20100710
  Serious: Yes (Other)
  Sender: FDA-Public Use
  Company Number: CA-JNJFOC-20090505884

PATIENT
  Sex: Male
  Weight: 90 kg

DRUGS (4)
  1. REMICADE [Suspect]
     Indication: CROHN'S DISEASE
     Dosage: 4 VIALS (DOSE UNSPECIFIED)
     Route: 042
     Dates: start: 20060101, end: 20090601
  2. REMICADE [Suspect]
     Dosage: 16 INFUSIONS TOTAL TO DATE
     Route: 042
     Dates: start: 20060101, end: 20090601
  3. TYLENOL [Concomitant]
     Indication: PREMEDICATION
  4. BENADRYL [Concomitant]
     Indication: PREMEDICATION

REACTIONS (11)
  - ADVERSE EVENT [None]
  - BODY TEMPERATURE INCREASED [None]
  - DRY SKIN [None]
  - EAR DISCOMFORT [None]
  - FEELING ABNORMAL [None]
  - HYPOAESTHESIA [None]
  - MEMORY IMPAIRMENT [None]
  - OEDEMA PERIPHERAL [None]
  - PAIN IN EXTREMITY [None]
  - PRURITUS [None]
  - SENSATION OF HEAVINESS [None]
